FAERS Safety Report 25936975 (Version 1)
Quarter: 2025Q4

REPORT INFORMATION
  Report Type: Spontaneous
  Country: EU (occurrence: EU)
  Receive Date: 20251017
  Receipt Date: 20251017
  Transmission Date: 20260117
  Serious: Yes (Death, Hospitalization, Other)
  Sender: SANDOZ
  Company Number: EU-BAYER-2018-112153

PATIENT
  Age: 70 Year
  Sex: Male

DRUGS (19)
  1. ASPIRIN [Suspect]
     Active Substance: ASPIRIN
     Indication: Antiplatelet therapy
     Dosage: 75 MG, QD
     Route: 065
  2. CEFTRIAXONE [Suspect]
     Active Substance: CEFTRIAXONE
     Indication: Pneumonia
     Dosage: UNK
     Route: 065
  3. CEFTRIAXONE [Suspect]
     Active Substance: CEFTRIAXONE
     Indication: Antibiotic therapy
  4. CIPROFLOXACIN [Suspect]
     Active Substance: CIPROFLOXACIN
     Indication: Pneumonia
     Dosage: UNK
     Route: 065
  5. CIPROFLOXACIN [Suspect]
     Active Substance: CIPROFLOXACIN
     Indication: Antibiotic therapy
  6. CEFTRIAXONE [Suspect]
     Active Substance: CEFTRIAXONE
     Indication: Pneumonia
     Dosage: UNK
     Route: 065
  7. ENOXAPARIN SODIUM [Suspect]
     Active Substance: ENOXAPARIN SODIUM
     Indication: Thrombosis
     Dosage: 40 MG, QD
     Route: 058
  8. EVEROLIMUS [Suspect]
     Active Substance: EVEROLIMUS
     Indication: Product used for unknown indication
     Dosage: DRUG-ELUTING STENT, INFUSION
     Route: 065
  9. EPTIFIBATIDE [Suspect]
     Active Substance: EPTIFIBATIDE
     Indication: Product used for unknown indication
     Dosage: INFUSION
     Route: 042
  10. GENTAMICIN [Suspect]
     Active Substance: GENTAMICIN
     Indication: Post procedural haematoma
     Dosage: UNK
     Route: 065
  11. HEPARIN [Suspect]
     Active Substance: HEPARIN SODIUM
     Indication: Haematoma
     Dosage: 40 MG, UNK
     Route: 058
  12. LEVOFLOXACIN [Suspect]
     Active Substance: LEVOFLOXACIN
     Indication: Antibiotic therapy
     Dosage: UNK
     Route: 065
  13. LEVOFLOXACIN [Suspect]
     Active Substance: LEVOFLOXACIN
     Indication: Sputum culture
  14. UNSPECIFIED INGREDIENT [Suspect]
     Active Substance: UNSPECIFIED INGREDIENT
     Indication: Product used for unknown indication
     Dosage: 40 MG
     Route: 058
  15. MEROPENEM [Suspect]
     Active Substance: MEROPENEM
     Indication: Antibiotic therapy
     Dosage: UNK
     Route: 065
  16. MEROPENEM [Suspect]
     Active Substance: MEROPENEM
     Indication: Sputum culture
  17. TICAGRELOR [Suspect]
     Active Substance: TICAGRELOR
     Indication: Antiplatelet therapy
     Dosage: 90 MG, 2X PER DAY
     Route: 065
  18. EPTIFIBATIDE [Concomitant]
     Active Substance: EPTIFIBATIDE
     Indication: Product used for unknown indication
     Dosage: UNK
     Route: 065
  19. TICAGRELOR [Concomitant]
     Active Substance: TICAGRELOR
     Indication: Antiplatelet therapy
     Dosage: UNK
     Route: 065

REACTIONS (14)
  - Pneumonia [Fatal]
  - Respiratory failure [Fatal]
  - Thrombosis [Fatal]
  - Haematoma [Fatal]
  - Condition aggravated [Fatal]
  - Cardiac arrest [Fatal]
  - Drug ineffective [Fatal]
  - General physical health deterioration [Unknown]
  - C-reactive protein increased [Unknown]
  - Procalcitonin increased [Unknown]
  - White blood cell count increased [Unknown]
  - Cardiac ventricular thrombosis [Not Recovered/Not Resolved]
  - Ventricular hyperkinesia [Unknown]
  - Skin necrosis [Unknown]
